FAERS Safety Report 16683991 (Version 3)
Quarter: 2019Q3

REPORT INFORMATION
  Report Type: Spontaneous
  Country: GB (occurrence: GB)
  Receive Date: 20190808
  Receipt Date: 20190909
  Transmission Date: 20191004
  Serious: Yes (Death)
  Sender: FDA-Public Use
  Company Number: IE-MALLINCKRODT-T201905478

PATIENT
  Age: 9 Year
  Sex: Male
  Weight: 16.65 kg

DRUGS (4)
  1. UVADEX [Suspect]
     Active Substance: METHOXSALEN
     Dosage: EXTRACORPOREAL, EVERY OTHER WK
     Route: 050
     Dates: start: 201802, end: 201901
  2. HEPARIN [Concomitant]
     Active Substance: HEPARIN SODIUM
     Indication: ANTICOAGULANT THERAPY
     Dosage: UNK
     Route: 065
  3. UVADEX [Suspect]
     Active Substance: METHOXSALEN
     Dosage: EXTRACORPOREAL, MONTHLY
     Route: 050
     Dates: start: 201901, end: 20190726
  4. UVADEX [Suspect]
     Active Substance: METHOXSALEN
     Indication: ACUTE GRAFT VERSUS HOST DISEASE
     Dosage: EXTRACORPOREAL, TWICE A WEEK
     Route: 050
     Dates: end: 201802

REACTIONS (3)
  - Chronic graft versus host disease [Fatal]
  - Product use in unapproved indication [Unknown]
  - Condition aggravated [Fatal]
